FAERS Safety Report 21914981 (Version 1)
Quarter: 2023Q1

REPORT INFORMATION
  Report Type: Spontaneous
  Country: US (occurrence: US)
  Receive Date: 20230126
  Receipt Date: 20230126
  Transmission Date: 20230417
  Serious: No
  Sender: FDA-Public Use
  Company Number: US-CATALYST PHARMACEUTICALS, INC-2022CAT00498

PATIENT
  Sex: Female
  Weight: 97.506 kg

DRUGS (11)
  1. FIRDAPSE [Suspect]
     Active Substance: AMIFAMPRIDINE PHOSPHATE
     Indication: Myasthenic syndrome
     Dosage: 10 MG, 4X/DAY
     Route: 048
     Dates: start: 20211008, end: 2022
  2. FIRDAPSE [Suspect]
     Active Substance: AMIFAMPRIDINE PHOSPHATE
     Dosage: UNK
     Dates: start: 2022, end: 202206
  3. FIRDAPSE [Suspect]
     Active Substance: AMIFAMPRIDINE PHOSPHATE
     Dosage: 30 MG DAILY
     Route: 048
     Dates: start: 2022, end: 2022
  4. HUMAN IMMUNOGLOBULIN G [Concomitant]
     Active Substance: HUMAN IMMUNOGLOBULIN G
     Route: 058
  5. BACLOFEN [Concomitant]
     Active Substance: BACLOFEN
  6. LEVOTHYROXINE [Concomitant]
     Active Substance: LEVOTHYROXINE
  7. LATUDA [Concomitant]
     Active Substance: LURASIDONE HYDROCHLORIDE
  8. ESTRADIOL [Concomitant]
     Active Substance: ESTRADIOL
  9. HYDROXYZINE [Concomitant]
     Active Substance: HYDROXYZINE HYDROCHLORIDE
  10. CETIRIZINE [Concomitant]
     Active Substance: CETIRIZINE HYDROCHLORIDE
  11. MESTINON [Concomitant]
     Active Substance: PYRIDOSTIGMINE BROMIDE

REACTIONS (7)
  - Micturition urgency [Unknown]
  - Hypertonic bladder [Recovered/Resolved]
  - Product impurity [Unknown]
  - Product substitution issue [Unknown]
  - Intentional product use issue [Not Recovered/Not Resolved]
  - Bladder pain [Recovered/Resolved]
  - Bladder spasm [Recovered/Resolved]

NARRATIVE: CASE EVENT DATE: 20220101
